FAERS Safety Report 7215744-6 (Version None)
Quarter: 2011Q1

REPORT INFORMATION
  Report Type: 
  Country: None (occurrence: None)
  Receive Date: 20110105
  Receipt Date: 20110105
  Transmission Date: 20110831
  Serious: Yes (Hospitalization)
  Sender: FDA-Public Use
  Company Number: None

PATIENT
  Age: 79 Year
  Sex: Male
  Weight: 106 kg

DRUGS (2)
  1. WARFARIN SODIUM [Suspect]
     Indication: HYPERLIPIDAEMIA
     Dosage: 500 MG HS PO
     Route: 048
  2. WARFARIN SODIUM [Suspect]
     Indication: ATRIAL FIBRILLATION
     Dates: start: 19970731

REACTIONS (5)
  - ANAEMIA [None]
  - GASTROINTESTINAL HAEMORRHAGE [None]
  - INTERNATIONAL NORMALISED RATIO INCREASED [None]
  - DIZZINESS [None]
  - FATIGUE [None]
